FAERS Safety Report 6427165-4 (Version None)
Quarter: 2009Q4

REPORT INFORMATION
  Report Type: 
  Country: None (occurrence: None)
  Receive Date: 20091026
  Receipt Date: 20090706
  Transmission Date: 20100525
  Serious: No
  Sender: FDA-Public Use
  Company Number: FPI-09-FIR-0191

PATIENT
  Age: 77 Year
  Sex: Male

DRUGS (5)
  1. FIRMAGON [Suspect]
     Indication: PROSTATE CANCER
     Dosage: 240MG (2 INJ X 120MG)
     Dates: start: 20090414, end: 20090414
  2. FIRMAGON [Suspect]
     Dosage: 80MG INJ X 2 DOSES
     Dates: start: 20090512, end: 20090609
  3. ZOCOR [Concomitant]
  4. ASPIRIN [Concomitant]
  5. ETODOLAC [Concomitant]

REACTIONS (1)
  - DRUG INEFFECTIVE [None]
